FAERS Safety Report 5188101-4 (Version None)
Quarter: 2006Q4

REPORT INFORMATION
  Report Type: 
  Country: None (occurrence: None)
  Receive Date: 20061221
  Receipt Date: 20061213
  Transmission Date: 20070319
  Serious: Yes (Other)
  Sender: FDA-Public Use
  Company Number: JP-ELI_LILLY_AND_COMPANY-JP200612002594

PATIENT
  Age: 76 Year
  Sex: Female
  Weight: 35 kg

DRUGS (2)
  1. RALOXIFENE HCL [Suspect]
     Indication: OSTEOPOROSIS POSTMENOPAUSAL
     Dosage: 60 MG, DAILY (1/D)
     Route: 048
     Dates: start: 20050111
  2. CYANOCOBALAMIN [Concomitant]
     Indication: BACK PAIN
     Dosage: 1500 UG, DAILY (1/D)
     Route: 048
     Dates: start: 20041217

REACTIONS (2)
  - ANAEMIA [None]
  - HYPOCALCAEMIA [None]
